FAERS Safety Report 7514966-4 (Version None)
Quarter: 2011Q2

REPORT INFORMATION
  Report Type: 
  Country: None (occurrence: None)
  Receive Date: 20110601
  Receipt Date: 20110511
  Transmission Date: 20111010
  Serious: Yes (Hospitalization)
  Sender: FDA-Public Use
  Company Number: US-BAYER-201025146NA

PATIENT
  Age: 42 Year
  Sex: Female
  Weight: 73 kg

DRUGS (10)
  1. I.V. SOLUTIONS [Concomitant]
  2. YAZ [Suspect]
     Route: 048
     Dates: start: 20040701, end: 20061201
  3. LEXAPRO [Concomitant]
     Indication: ANXIETY
     Dosage: UNK
     Dates: start: 20061201
  4. FLEXERIL [Concomitant]
     Indication: MUSCLE RELAXANT THERAPY
     Dosage: UNK
     Dates: start: 20060821, end: 20060823
  5. PERCOCET [Concomitant]
  6. TRAMADOL HYDROCHLORIDE AND ACETAMINOPHEN [Concomitant]
     Indication: BACK PAIN
     Dosage: UNK
     Dates: start: 20060816, end: 20060829
  7. LEXAPRO [Concomitant]
     Indication: DEPRESSION
  8. ZYRTEC [Concomitant]
     Indication: MULTIPLE ALLERGIES
     Dosage: UNK
     Dates: start: 20060701, end: 20070601
  9. XANAX [Concomitant]
     Indication: ANXIETY DISORDER
     Dosage: UNK
     Dates: start: 19890101
  10. YASMIN [Suspect]
     Indication: OVULATION PAIN
     Route: 048
     Dates: start: 20040701, end: 20061201

REACTIONS (9)
  - CHOLELITHIASIS [None]
  - NAUSEA [None]
  - PANCREATITIS ACUTE [None]
  - VOMITING [None]
  - BACK PAIN [None]
  - CHOLECYSTITIS ACUTE [None]
  - CHOLECYSTITIS CHRONIC [None]
  - FOOD INTOLERANCE [None]
  - ABDOMINAL PAIN UPPER [None]
